FAERS Safety Report 25266339 (Version 2)
Quarter: 2025Q3

REPORT INFORMATION
  Report Type: Report from Study
  Country: US (occurrence: US)
  Receive Date: 20250504
  Receipt Date: 20250702
  Transmission Date: 20251021
  Serious: Yes (Hospitalization, Other)
  Sender: TAKEDA
  Company Number: US-TAKEDA-2025TUS042665

PATIENT
  Sex: Female

DRUGS (14)
  1. PONATINIB [Suspect]
     Active Substance: PONATINIB
     Indication: Acute lymphocytic leukaemia
     Dosage: 15 MILLIGRAM, QD
  2. PONATINIB [Suspect]
     Active Substance: PONATINIB
     Dosage: 15 MILLIGRAM, QD
  3. BLINCYTO [Concomitant]
     Active Substance: BLINATUMOMAB
  4. FISH OIL [Concomitant]
     Active Substance: FISH OIL
  5. DULOXETINE HYDROCHLORIDE [Concomitant]
     Active Substance: DULOXETINE HYDROCHLORIDE
  6. ACYCLOVIR [Concomitant]
     Active Substance: ACYCLOVIR
  7. AMOXICILLIN\CLAVULANATE POTASSIUM [Concomitant]
     Active Substance: AMOXICILLIN\CLAVULANATE POTASSIUM
  8. ASPIRIN [Concomitant]
     Active Substance: ASPIRIN
  9. ATOVAQUONE [Concomitant]
     Active Substance: ATOVAQUONE
  10. OMEPRAZOLE [Concomitant]
     Active Substance: OMEPRAZOLE
  11. VITAMIN D3 [Concomitant]
     Active Substance: CHOLECALCIFEROL
  12. Macular Health Formula [Concomitant]
  13. ZOFRAN [Concomitant]
     Active Substance: ONDANSETRON HYDROCHLORIDE
  14. RENVELA [Concomitant]
     Active Substance: SEVELAMER CARBONATE

REACTIONS (4)
  - Localised infection [Unknown]
  - Macular degeneration [Unknown]
  - Peripheral swelling [Unknown]
  - Off label use [Unknown]
